FAERS Safety Report 21655408 (Version 2)
Quarter: 2023Q1

REPORT INFORMATION
  Report Type: Spontaneous
  Country: US (occurrence: US)
  Receive Date: 20221129
  Receipt Date: 20230227
  Transmission Date: 20230417
  Serious: No
  Sender: FDA-Public Use
  Company Number: US-AMGEN-USASP2022202170

PATIENT
  Age: 1 Year
  Sex: Female

DRUGS (1)
  1. CORLANOR [Suspect]
     Active Substance: IVABRADINE HYDROCHLORIDE
     Indication: Product used for unknown indication
     Dosage: AMPULES, 5 MILLIGRAM PER MILLILITRE
     Route: 065

REACTIONS (1)
  - Product packaging quantity issue [Unknown]

NARRATIVE: CASE EVENT DATE: 20221101
